FAERS Safety Report 5960358-9 (Version None)
Quarter: 2008Q4

REPORT INFORMATION
  Report Type: 
  Country: None (occurrence: None)
  Receive Date: 20081112
  Receipt Date: 20080821
  Transmission Date: 20090506
  Serious: Yes (Life-Threatening)
  Sender: FDA-Public Use
  Company Number: 2008S1000292

PATIENT
  Sex: Female
  Weight: 147.9 kg

DRUGS (22)
  1. CUBICIN [Suspect]
     Indication: CELLULITIS
     Dosage: 4 MG/KG;Q24H;IV
     Route: 042
     Dates: start: 20080214, end: 20080214
  2. DEPAKOTE [Concomitant]
  3. ENOXAPARIN SODIUM [Concomitant]
  4. METOLAZONE [Concomitant]
  5. DOCUSATE [Concomitant]
  6. POTASSIUM CHLORIDE [Concomitant]
  7. DULOXETINE [Concomitant]
  8. SPIRONOLACTONE [Concomitant]
  9. FUROSEMIDE [Concomitant]
  10. CLINDAMYCIN HCL [Concomitant]
  11. LINEZOLID [Concomitant]
  12. VANCOMYCIN [Concomitant]
  13. LEVOFLOXACIN [Concomitant]
  14. ASPIRIN [Concomitant]
  15. MAGNESIUM OXIDE [Concomitant]
  16. LACTINEX [Concomitant]
  17. MUPIROCIN [Concomitant]
  18. PRIMAXIN [Concomitant]
  19. PERCOCET [Concomitant]
  20. LAC-HYDRIN [Concomitant]
  21. HYDROMORPHONE HCL [Concomitant]
  22. PALIPERIDONE [Concomitant]

REACTIONS (1)
  - ANAPHYLACTIC REACTION [None]
